FAERS Safety Report 5473552-0 (Version None)
Quarter: 2007Q4

REPORT INFORMATION
  Report Type: 
  Country: None (occurrence: None)
  Receive Date: 20071001
  Receipt Date: 20070425
  Transmission Date: 20080405
  Serious: No
  Sender: FDA-Public Use
  Company Number: US-ASTRAZENECA-2007UW08062

PATIENT
  Age: 64 Year
  Sex: Female
  Weight: 65.8 kg

DRUGS (4)
  1. ARIMIDEX [Suspect]
     Indication: BREAST CANCER
     Route: 048
     Dates: start: 20061101, end: 20061201
  2. VERAPAMIL [Concomitant]
  3. LIPITOR [Concomitant]
  4. FAMVIR [Concomitant]

REACTIONS (8)
  - ARTHRALGIA [None]
  - DEPRESSION [None]
  - FATIGUE [None]
  - HOT FLUSH [None]
  - ILL-DEFINED DISORDER [None]
  - INSOMNIA [None]
  - MOOD ALTERED [None]
  - WEIGHT DECREASED [None]
